FAERS Safety Report 6160296-5 (Version None)
Quarter: 2009Q2

REPORT INFORMATION
  Report Type: 
  Country: None (occurrence: None)
  Receive Date: 20090416
  Receipt Date: 20090416
  Transmission Date: 20091009
  Serious: Yes (Other)
  Sender: FDA-Public Use
  Company Number: None

PATIENT
  Age: 46 Year
  Sex: Female
  Weight: 54.4316 kg

DRUGS (1)
  1. GENERIC LEMOTRIGINE 150 MG UNKNOWN [Suspect]
     Indication: BIPOLAR II DISORDER
     Dosage: 150MG 2 TIMES A DAY PO
     Route: 048
     Dates: start: 20081001, end: 20090401

REACTIONS (4)
  - DEPRESSION [None]
  - HEADACHE [None]
  - PRODUCT SUBSTITUTION ISSUE [None]
  - SUICIDAL IDEATION [None]
